FAERS Safety Report 12455796 (Version 1)
Quarter: 2016Q2

REPORT INFORMATION
  Report Type: Spontaneous
  Country: BR (occurrence: BR)
  Receive Date: 20160610
  Receipt Date: 20160610
  Transmission Date: 20160815
  Serious: Yes (Other)
  Sender: FDA-Public Use
  Company Number: BR-MYLANLABS-2016M1023995

PATIENT

DRUGS (1)
  1. ISOTRETINOIN [Suspect]
     Active Substance: ISOTRETINOIN
     Indication: ACNE
     Dosage: 40 MG/DAY (0.54 MG/KG/DAY); A CUMULATIVE DOSE OF 120 MG/KG, TOTALLING 7 MONTHS
     Route: 065

REACTIONS (3)
  - Excessive granulation tissue [Recovered/Resolved]
  - Ingrowing nail [Recovered/Resolved]
  - Paronychia [Recovered/Resolved]
